FAERS Safety Report 9494306 (Version 2)
Quarter: 2013Q3

REPORT INFORMATION
  Report Type: Spontaneous
  Country: US (occurrence: None)
  Receive Date: 20130828
  Receipt Date: 20130910
  Transmission Date: 20140515
  Serious: Yes (Hospitalization)
  Sender: FDA-Public Use
  Company Number: 2013P1018696

PATIENT
  Age: 52 Year
  Sex: Male

DRUGS (5)
  1. INFUMORPH [Suspect]
     Indication: PAIN
     Route: 037
  2. INFUMORPH [Suspect]
     Indication: PAIN
     Route: 037
  3. HYDROCODONE [Concomitant]
  4. ALEVE [Concomitant]
  5. ZOLOFT [Concomitant]

REACTIONS (11)
  - Underdose [None]
  - Drug withdrawal syndrome [None]
  - Nausea [None]
  - Vomiting [None]
  - Diarrhoea [None]
  - Hyperhidrosis [None]
  - Muscle spasms [None]
  - Device alarm issue [None]
  - Device breakage [None]
  - Device failure [None]
  - Drug effect incomplete [None]
